FAERS Safety Report 6679603-X (Version None)
Quarter: 2010Q2

REPORT INFORMATION
  Report Type: 
  Country: None (occurrence: None)
  Receive Date: 20100408
  Receipt Date: 20090803
  Transmission Date: 20101027
  Serious: No
  Sender: FDA-Public Use
  Company Number: 2009-00453

PATIENT
  Age: 81 Year
  Sex: Male
  Weight: 73.4827 kg

DRUGS (4)
  1. ZICAM COLD REMEDY NASAL GEL [Suspect]
     Dosage: Q 3 HRS-3 DOSES, 1 DAY
     Dates: start: 20090802, end: 20090802
  2. COUMADIN [Concomitant]
  3. ZETIA [Concomitant]
  4. OMEPRAZOLE [Concomitant]

REACTIONS (1)
  - AGEUSIA [None]
